FAERS Safety Report 24414008 (Version 1)
Quarter: 2024Q4

REPORT INFORMATION
  Report Type: Spontaneous
  Country: US (occurrence: US)
  Receive Date: 20241008
  Receipt Date: 20241008
  Transmission Date: 20250115
  Serious: No
  Sender: BAUSCH AND LOMB
  Company Number: US-BAUSCHBL-2024BNL034509

PATIENT
  Age: 78 Year
  Sex: Male

DRUGS (2)
  1. XIPERE [Suspect]
     Active Substance: TRIAMCINOLONE ACETONIDE
     Indication: Retinitis
     Route: 047
  2. CRESTOR [Concomitant]
     Active Substance: ROSUVASTATIN CALCIUM
     Indication: Product used for unknown indication
     Route: 048

REACTIONS (1)
  - Intraocular pressure increased [Not Recovered/Not Resolved]
